FAERS Safety Report 5352446-5 (Version None)
Quarter: 2007Q2

REPORT INFORMATION
  Report Type: 
  Country: None (occurrence: None)
  Receive Date: 20070611
  Receipt Date: 20070606
  Transmission Date: 20071010
  Serious: Yes (Other)
  Sender: FDA-Public Use
  Company Number: A0654442A

PATIENT
  Age: 77 Year
  Sex: Female

DRUGS (9)
  1. AVANDIA [Suspect]
     Dosage: 8MG PER DAY
     Route: 048
     Dates: start: 20030211
  2. GEMFIBROZIL [Concomitant]
  3. CLARINEX [Concomitant]
  4. METFORMIN HCL [Concomitant]
  5. DIOVAN HCT [Concomitant]
  6. TOPROL-XL [Concomitant]
  7. FOSAMAX [Concomitant]
  8. PROCRIT [Concomitant]
  9. IRON [Concomitant]

REACTIONS (3)
  - ANAEMIA [None]
  - FATIGUE [None]
  - GAIT DISTURBANCE [None]
